FAERS Safety Report 9541633 (Version 1)
Quarter: 2013Q3

REPORT INFORMATION
  Report Type: Spontaneous
  Country: DE (occurrence: DE)
  Receive Date: 20130923
  Receipt Date: 20130923
  Transmission Date: 20140515
  Serious: Yes (Hospitalization, Other)
  Sender: FDA-Public Use
  Company Number: DE-JNJFOC-20130911230

PATIENT
  Age: 74 Year
  Sex: Male
  Weight: 84 kg

DRUGS (6)
  1. XARELTO [Suspect]
     Indication: CEREBROVASCULAR ACCIDENT PROPHYLAXIS
     Route: 048
  2. XARELTO [Suspect]
     Indication: ATRIAL FIBRILLATION
     Route: 048
  3. TAMSULOSIN [Concomitant]
     Indication: BENIGN PROSTATIC HYPERPLASIA
     Route: 065
  4. BISOPROLOL [Concomitant]
     Indication: HYPERTENSION
     Route: 065
  5. SIMVASTATIN [Concomitant]
     Indication: HYPERLIPIDAEMIA
     Route: 065
  6. VOTUM [Concomitant]
     Indication: HYPERTENSION
     Dosage: 40/12.5
     Route: 065

REACTIONS (1)
  - Anaemia [Not Recovered/Not Resolved]
